FAERS Safety Report 6409709-1 (Version None)
Quarter: 2009Q4

REPORT INFORMATION
  Report Type: 
  Country: None (occurrence: None)
  Receive Date: 20091022
  Receipt Date: 20091008
  Transmission Date: 20100525
  Serious: Yes (Other)
  Sender: FDA-Public Use
  Company Number: PHHY2009JP44443

PATIENT
  Sex: Male
  Weight: 56 kg

DRUGS (15)
  1. ICL670A ICL+DISTAB [Suspect]
     Indication: IRON OVERLOAD
     Dosage: 500 MG DAILY
     Route: 048
     Dates: start: 20081226, end: 20090210
  2. NEORAL [Suspect]
     Indication: APLASTIC ANAEMIA
     Dosage: 150 MG DAILY
     Route: 048
     Dates: start: 20081226, end: 20090214
  3. NEORAL [Suspect]
     Dosage: 200 MG DAILY
     Route: 048
     Dates: start: 20090215, end: 20090323
  4. NEORAL [Suspect]
     Dosage: 150 MG, DAILY
     Route: 048
     Dates: start: 20090324, end: 20090519
  5. NEORAL [Suspect]
     Dosage: 250 MG DAILY
     Route: 048
     Dates: start: 20090520, end: 20090625
  6. PRIMOBOLAN [Suspect]
     Indication: APLASTIC ANAEMIA
     Dosage: 20 MG DAILY
     Route: 048
     Dates: start: 20090128, end: 20090227
  7. NORVASC [Concomitant]
     Dosage: 2.5 MG, UNK
     Route: 048
     Dates: start: 20081226, end: 20090626
  8. RENIVACE [Concomitant]
     Dosage: 5 MG, UNK
     Route: 048
     Dates: start: 20081226, end: 20090626
  9. BAKTAR [Concomitant]
     Indication: PROPHYLAXIS
     Dosage: 1 G, UNK
     Route: 048
     Dates: start: 20081226, end: 20090626
  10. GASTER D [Concomitant]
     Indication: PROPHYLAXIS
     Dosage: 20 MG, UNK
     Route: 048
     Dates: start: 20081226, end: 20090326
  11. CIPROXAN [Concomitant]
     Indication: PROPHYLAXIS
     Dosage: 600 MG, UNK
     Route: 048
     Dates: start: 20081226, end: 20090206
  12. ITRIZOLE [Concomitant]
     Indication: PROPHYLAXIS
     Dosage: 200 MG, UNK
     Route: 048
     Dates: start: 20081226, end: 20090206
  13. PREDNISOLONE [Concomitant]
     Indication: APLASTIC ANAEMIA
     Dosage: 12 MG, UNK
     Route: 048
     Dates: start: 20081226, end: 20090106
  14. PLATELETS [Concomitant]
     Dosage: 10 UNITS EVERY 4 DAYS
     Dates: start: 20081226, end: 20090626
  15. RED BLOOD CELLS [Concomitant]
     Dosage: 2 UNITS EVERY WEEK
     Dates: start: 20081226, end: 20090626

REACTIONS (8)
  - ALANINE AMINOTRANSFERASE ABNORMAL [None]
  - ASPARTATE AMINOTRANSFERASE ABNORMAL [None]
  - BLOOD ALKALINE PHOSPHATASE ABNORMAL [None]
  - BLOOD CREATININE ABNORMAL [None]
  - DRUG LEVEL CHANGED [None]
  - GAMMA-GLUTAMYLTRANSFERASE ABNORMAL [None]
  - LIVER DISORDER [None]
  - RENAL DISORDER [None]
